FAERS Safety Report 7125419-X (Version None)
Quarter: 2010Q4

REPORT INFORMATION
  Report Type: 
  Country: None (occurrence: None)
  Receive Date: 20101129
  Receipt Date: 20101118
  Transmission Date: 20110411
  Serious: Yes (Hospitalization, Other)
  Sender: FDA-Public Use
  Company Number: US-ELI_LILLY_AND_COMPANY-US201011006086

PATIENT
  Age: 61 Year
  Sex: Male

DRUGS (2)
  1. EFFIENT [Suspect]
     Dosage: 10 MG, UNKNOWN
     Route: 065
     Dates: start: 20100401, end: 20101113
  2. ASPIRIN [Concomitant]
     Dosage: 325 MG, UNKNOWN
     Route: 065

REACTIONS (1)
  - EMBOLIC STROKE [None]
